FAERS Safety Report 8028488-8 (Version None)
Quarter: 2012Q1

REPORT INFORMATION
  Report Type: 
  Country: None (occurrence: None)
  Receive Date: 20120106
  Receipt Date: 20110502
  Transmission Date: 20120608
  Serious: No
  Sender: FDA-Public Use
  Company Number: US-MYLANLABS-2011S1009542

PATIENT
  Sex: Female

DRUGS (1)
  1. CETIRIZINE HYDROCHLORIDE [Suspect]
     Route: 048
     Dates: start: 20110502, end: 20110502

REACTIONS (2)
  - INCORRECT DOSE ADMINISTERED [None]
  - NO ADVERSE EVENT [None]
